FAERS Safety Report 6146855-4 (Version None)
Quarter: 2009Q2

REPORT INFORMATION
  Report Type: 
  Country: None (occurrence: None)
  Receive Date: 20090407
  Receipt Date: 20090331
  Transmission Date: 20091009
  Serious: Yes (Other)
  Sender: FDA-Public Use
  Company Number: FR-PFIZER INC-2009190631

PATIENT

DRUGS (4)
  1. TAHOR [Suspect]
     Dosage: 20 MG, 1X/DAY
  2. PLAVIX [Suspect]
     Indication: CORONARY ARTERY INSUFFICIENCY
     Dosage: 75 MG, 1X/DAY
     Route: 048
     Dates: end: 20090302
  3. ISOPTIN [Concomitant]
     Dosage: 240 MG, 1X/DAY
  4. LANZOR [Concomitant]
     Dosage: 15 MG, 2X/DAY

REACTIONS (15)
  - ARTHRALGIA [None]
  - ASTHENIA [None]
  - BLOOD POTASSIUM DECREASED [None]
  - BRONCHITIS [None]
  - DECUBITUS ULCER [None]
  - DRUG INTOLERANCE [None]
  - FLATULENCE [None]
  - HIATUS HERNIA [None]
  - MUSCLE STRAIN [None]
  - ORTHOPNOEA [None]
  - PELVIC FLUID COLLECTION [None]
  - PLEURAL EFFUSION [None]
  - PLEURISY [None]
  - SYNOVIAL CYST [None]
  - SYSTEMIC INFLAMMATORY RESPONSE SYNDROME [None]
